FAERS Safety Report 8604462-5 (Version None)
Quarter: 2012Q3

REPORT INFORMATION
  Report Type: 
  Country: None (occurrence: None)
  Receive Date: 20120808
  Receipt Date: 20120808
  Transmission Date: 20120928
  Serious: Yes (Hospitalization)
  Sender: FDA-Public Use
  Company Number: None

PATIENT
  Age: 62 Year
  Sex: Male
  Weight: 83.8 kg

DRUGS (6)
  1. ALBUTEROL SULFATE [Concomitant]
  2. TESTOSTERONE [Suspect]
     Indication: HYPOGONADISM
     Dosage: WEEKLY, TOPICAL
     Route: 061
     Dates: start: 20120630, end: 20120630
  3. TESTOSTERONE [Suspect]
     Indication: HYPOGONADISM
     Dosage: WEEKLY, TOPICAL
     Route: 061
     Dates: start: 20120623, end: 20120623
  4. TESTOSTERONE [Suspect]
     Indication: HYPOGONADISM
     Dosage: WEEKLY, TOPICAL
     Route: 061
     Dates: start: 20120707, end: 20120707
  5. PREDNISONE TAB [Concomitant]
  6. AUGMENTIN /00756801/(AMOXICILLIN SODIUM, CLAVULANATE POTASSIUM) [Concomitant]

REACTIONS (1)
  - UPPER RESPIRATORY TRACT INFECTION [None]
